FAERS Safety Report 13886509 (Version 3)
Quarter: 2017Q3

REPORT INFORMATION
  Report Type: Report from Study
  Country: US (occurrence: US)
  Receive Date: 20170821
  Receipt Date: 20170927
  Transmission Date: 20171127
  Serious: Yes (Hospitalization, Other)
  Sender: FDA-Public Use
  Company Number: US-ALEXION PHARMACEUTICALS INC.-A201709097

PATIENT
  Sex: Male

DRUGS (1)
  1. SOLIRIS [Suspect]
     Active Substance: ECULIZUMAB
     Indication: HAEMOLYTIC URAEMIC SYNDROME
     Dosage: 900 MG, UNK
     Route: 042

REACTIONS (9)
  - Necrosis [Unknown]
  - Wound secretion [Unknown]
  - Peripheral swelling [Unknown]
  - Wound complication [Unknown]
  - Gangrene [Recovering/Resolving]
  - Sepsis [Unknown]
  - Poor peripheral circulation [Unknown]
  - Condition aggravated [Unknown]
  - Pain in extremity [Unknown]
